FAERS Safety Report 13850038 (Version 1)
Quarter: 2017Q3

REPORT INFORMATION
  Report Type: Spontaneous
  Country: CH (occurrence: CH)
  Receive Date: 20170809
  Receipt Date: 20170809
  Transmission Date: 20171127
  Serious: Yes (Life-Threatening, Hospitalization)
  Sender: FDA-Public Use
  Company Number: CH-AMGEN-CHESP2017118944

PATIENT
  Age: 76 Year
  Sex: Female

DRUGS (6)
  1. MIRTAZAPINE. [Concomitant]
     Active Substance: MIRTAZAPINE
     Dosage: UNK
     Route: 048
  2. LENALIDOMIDE [Suspect]
     Active Substance: LENALIDOMIDE
     Indication: PLASMA CELL MYELOMA
     Dosage: 25 MG, QD
     Route: 048
     Dates: start: 20161229
  3. DEXAMETHASON [Suspect]
     Active Substance: DEXAMETHASONE
     Indication: PRODUCT USED FOR UNKNOWN INDICATION
     Dosage: 40 MG, QWK
     Route: 041
     Dates: start: 20161229
  4. KYPROLIS [Suspect]
     Active Substance: CARFILZOMIB
     Indication: PLASMA CELL MYELOMA
     Dosage: 40 MG, QWK
     Route: 041
     Dates: start: 20161229
  5. DEROXAT [Concomitant]
     Active Substance: PAROXETINE HYDROCHLORIDE
     Dosage: UNK
     Route: 048
  6. CALCIMAGON [Concomitant]
     Active Substance: CALCIUM
     Dosage: UNK
     Route: 048

REACTIONS (3)
  - Confusional state [Recovering/Resolving]
  - Meningitis listeria [Recovering/Resolving]
  - Pyrexia [Recovered/Resolved]

NARRATIVE: CASE EVENT DATE: 20170705
